FAERS Safety Report 5298047-9 (Version None)
Quarter: 2007Q2

REPORT INFORMATION
  Report Type: 
  Country: None (occurrence: None)
  Receive Date: 20070416
  Receipt Date: 20070403
  Transmission Date: 20071010
  Serious: Yes (Disabling)
  Sender: FDA-Public Use
  Company Number: PHEH2007US03421

PATIENT
  Sex: Female

DRUGS (1)
  1. FEMARA [Suspect]

REACTIONS (5)
  - ARTHRALGIA [None]
  - ARTHRITIS [None]
  - BURSITIS [None]
  - CONDITION AGGRAVATED [None]
  - GAIT DISTURBANCE [None]
